FAERS Safety Report 8664471 (Version 2)
Quarter: 2012Q4

REPORT INFORMATION
  Report Type: 
  Country: GB (occurrence: GB)
  Receive Date: 20120713
  Receipt Date: 20120917
  Transmission Date: 20130627
  Serious: Yes (Hospitalization, Other)
  Sender: FDA-Public Use
  Company Number: GB-JNJFOC-20120607498

PATIENT
  Age: 28 None
  Sex: Male

DRUGS (1)
  1. XEPLION [Suspect]
     Indication: SCHIZOPHRENIA
     Route: 030
     Dates: start: 20120415, end: 20120612

REACTIONS (4)
  - Akathisia [Unknown]
  - Hospitalisation [Recovered/Resolved]
  - Anxiety [Unknown]
  - Agitation [Unknown]
